FAERS Safety Report 7179444-3 (Version None)
Quarter: 2010Q4

REPORT INFORMATION
  Report Type: 
  Country: None (occurrence: None)
  Receive Date: 20101221
  Receipt Date: 20101214
  Transmission Date: 20110411
  Serious: Yes (Death, Hospitalization)
  Sender: FDA-Public Use
  Company Number: PHHY2010SE86276

PATIENT
  Sex: Male

DRUGS (9)
  1. ETOPOSIDE [Suspect]
     Indication: TESTIS CANCER
     Dosage: 3.2 G, QH
     Route: 042
     Dates: start: 20100713, end: 20100716
  2. SENDOXAN [Suspect]
     Indication: TESTIS CANCER
     Dosage: 10 G, QH
     Route: 042
     Dates: start: 20100713, end: 20100716
  3. TAXOL [Suspect]
     Indication: TESTIS CANCER
     Dosage: 1 DF, QD
     Route: 042
     Dates: start: 20100914, end: 20100914
  4. TAXOL [Suspect]
     Dosage: 1 DOSAGE FORM
     Route: 042
     Dates: start: 20100917, end: 20100917
  5. HOLOXAN [Suspect]
     Indication: TESTIS CANCER
     Dosage: 2.7
     Route: 042
     Dates: start: 20100915, end: 20100918
  6. PARAPLATIN [Suspect]
     Indication: TESTIS CANCER
     Dosage: 820 MG, QD
     Route: 042
     Dates: start: 20100713, end: 20100716
  7. PARAPLATIN [Suspect]
     Dosage: 820 MG, QD
     Route: 042
     Dates: start: 20100915, end: 20100918
  8. KALIUMKLORID [Concomitant]
  9. UROMITEXAN [Concomitant]

REACTIONS (10)
  - BLOOD PRESSURE DECREASED [None]
  - CEREBRAL INFARCTION [None]
  - ENDOTRACHEAL INTUBATION [None]
  - LOSS OF CONSCIOUSNESS [None]
  - MEDIASTINUM NEOPLASM [None]
  - OXYGEN SATURATION DECREASED [None]
  - PARENTERAL NUTRITION [None]
  - SEPTIC SHOCK [None]
  - STEM CELL TRANSPLANT [None]
  - URINE OUTPUT DECREASED [None]
